FAERS Safety Report 17447870 (Version 1)
Quarter: 2020Q1

REPORT INFORMATION
  Report Type: Spontaneous
  Country: ES (occurrence: ES)
  Receive Date: 20200221
  Receipt Date: 20200221
  Transmission Date: 20200409
  Serious: Yes (Hospitalization)
  Sender: FDA-Public Use
  Company Number: ES-ACCORD-173063

PATIENT
  Age: 70 Year
  Sex: Male

DRUGS (12)
  1. EZETIMIBE. [Suspect]
     Active Substance: EZETIMIBE
     Indication: DYSLIPIDAEMIA
     Dosage: 10
     Route: 048
     Dates: start: 20190620, end: 20200107
  2. LERCANIDIPINE [Concomitant]
     Active Substance: LERCANIDIPINE
     Indication: HYPERTENSION
     Dosage: 10
     Dates: start: 20190426
  3. BISOPROLOL [Concomitant]
     Active Substance: BISOPROLOL
     Dosage: 2.5
     Route: 048
     Dates: start: 20180803
  4. TESTEX PROLONGATUM [Concomitant]
     Indication: HYPOPITUITARISM
     Dosage: STRENGTH 250 MG / 2 ML SOLUTION FOR INJECTION, 1 AMPOULE OF 2 ML
     Dates: start: 20161014
  5. EBASTEL [Concomitant]
     Active Substance: EBASTINE
     Dosage: 10, STRENGTH 10 MG,FILM-COATED TABLETS, 20 TABLETS
     Route: 048
     Dates: start: 20190530
  6. ESBRIET [Suspect]
     Active Substance: PIRFENIDONE
     Indication: IDIOPATHIC PULMONARY FIBROSIS
     Dosage: ESBRIET 267
     Route: 048
     Dates: start: 20191003, end: 20200107
  7. ROSUVASTATIN. [Suspect]
     Active Substance: ROSUVASTATIN
     Indication: DYSLIPIDAEMIA
     Dosage: 20
     Route: 048
     Dates: start: 20181205, end: 20200107
  8. HYDROCORTISONE. [Concomitant]
     Active Substance: HYDROCORTISONE
     Indication: HYPOPITUITARISM
     Dosage: 20, 10
     Route: 048
     Dates: start: 20081128
  9. PANTOPRAZOLE [Concomitant]
     Active Substance: PANTOPRAZOLE
     Dosage: 20
     Route: 048
     Dates: start: 20191008
  10. EUTIROX [Concomitant]
     Active Substance: LEVOTHYROXINE SODIUM
     Indication: HYPOPITUITARISM
     Dosage: STRENGTH 100 MICROGRAMS , 100 TABLETS
     Route: 048
     Dates: start: 20200124
  11. RAMIPRIL. [Concomitant]
     Active Substance: RAMIPRIL
     Indication: HYPERTENSION
     Dosage: 10
     Route: 048
     Dates: start: 20181116
  12. ADIRO [Concomitant]
     Active Substance: ASPIRIN
     Indication: MYOCARDIAL ISCHAEMIA
     Dosage: 100
     Route: 048
     Dates: start: 20161014

REACTIONS (3)
  - Hepatitis [Recovering/Resolving]
  - Hypocoagulable state [Recovered/Resolved]
  - Hyperbilirubinaemia [Recovering/Resolving]

NARRATIVE: CASE EVENT DATE: 20200107
